FAERS Safety Report 4780674-6 (Version None)
Quarter: 2005Q3

REPORT INFORMATION
  Report Type: 
  Country: None (occurrence: None)
  Receive Date: 20050927
  Receipt Date: 20050817
  Transmission Date: 20060218
  Serious: Yes (Congenital Anomaly)
  Sender: FDA-Public Use
  Company Number: DE-MERCK-0508DEU00149

PATIENT

DRUGS (1)
  1. MAXALT [Suspect]

REACTIONS (1)
  - TRISOMY 21 [None]
